FAERS Safety Report 9461106 (Version 2)
Quarter: 2013Q4

REPORT INFORMATION
  Report Type: Spontaneous
  Country: US (occurrence: US)
  Receive Date: 20130816
  Receipt Date: 20131128
  Transmission Date: 20140711
  Serious: Yes (Hospitalization, Other)
  Sender: FDA-Public Use
  Company Number: US-BIOGENIDEC-2013BI072018

PATIENT
  Age: 55 Year
  Sex: Male

DRUGS (12)
  1. TECFIDERA [Suspect]
     Indication: MULTIPLE SCLEROSIS
     Route: 048
     Dates: start: 201307, end: 201307
  2. TECFIDERA [Suspect]
     Indication: MULTIPLE SCLEROSIS
     Route: 048
     Dates: start: 201307
  3. BACLOFEN [Concomitant]
  4. VITAMIN D [Concomitant]
  5. VALIUM [Concomitant]
  6. PEPCID [Concomitant]
  7. NEURONTIN [Concomitant]
  8. DITROPAN [Concomitant]
  9. SENEKOT [Concomitant]
  10. TRAZADONE [Concomitant]
  11. BUMEX [Concomitant]
  12. NORVASC [Concomitant]

REACTIONS (3)
  - Vomiting [Recovered/Resolved]
  - Deep vein thrombosis [Not Recovered/Not Resolved]
  - Renal failure [Unknown]
